FAERS Safety Report 9708182 (Version 2)
Quarter: 2014Q1

REPORT INFORMATION
  Report Type: Spontaneous
  Country: US (occurrence: US)
  Receive Date: 20131125
  Receipt Date: 20140121
  Transmission Date: 20141002
  Serious: Yes (Other)
  Sender: FDA-Public Use
  Company Number: US-TEVA-445648USA

PATIENT
  Age: 23 Year
  Sex: Female
  Weight: 93.98 kg

DRUGS (3)
  1. PARAGARD 380A [Suspect]
     Indication: CONTRACEPTION
     Route: 015
     Dates: start: 20130117, end: 20130819
  2. PARAGARD 380A [Suspect]
     Route: 015
     Dates: start: 20130909, end: 20131028
  3. ZOLOFT [Concomitant]
     Indication: DEPRESSION

REACTIONS (3)
  - Device dislocation [Recovered/Resolved]
  - Muscle spasms [Unknown]
  - Pain [Unknown]
